FAERS Safety Report 4547106-4 (Version None)
Quarter: 2005Q1

REPORT INFORMATION
  Report Type: 
  Country: None (occurrence: None)
  Receive Date: 20050105
  Receipt Date: 20041228
  Transmission Date: 20050727
  Serious: Yes (Disabling)
  Sender: FDA-Public Use
  Company Number: TPA2004A01147

PATIENT
  Age: 53 Year
  Sex: Female

DRUGS (6)
  1. ACTOS [Suspect]
     Indication: DIABETES MELLITUS NON-INSULIN-DEPENDENT
     Dosage: 30 MG, 1 IN 1 D, PER ORAL
     Route: 048
     Dates: end: 20040207
  2. AMARYL [Suspect]
     Indication: DIABETES MELLITUS NON-INSULIN-DEPENDENT
     Dosage: 2 MG, 1 IN 1 D, PER ORAL
     Route: 048
  3. ACCUPRIL (QUINAPRIL HYDROCHLORIDE) (40 MILLIGRAM) [Concomitant]
  4. NORVASC (AMLODIPINE BESILATE) (5 MILLIGRAM) [Concomitant]
  5. HCTZ (HYDROCHLOROTHIAZIDE) (12.5 MILLIGRAM) [Concomitant]
  6. GLUCOPHAGE [Suspect]
     Indication: DIABETES MELLITUS NON-INSULIN-DEPENDENT
     Dosage: 850 MG, 2 IN 1 D, PER ORAL
     Route: 048

REACTIONS (14)
  - BLINDNESS [None]
  - BLOOD GLUCOSE DECREASED [None]
  - CALCINOSIS [None]
  - CATARACT NUCLEAR [None]
  - DIABETIC RETINOPATHY [None]
  - FEELING ABNORMAL [None]
  - FIBROSIS [None]
  - MACULAR OEDEMA [None]
  - MACULOPATHY [None]
  - RETINAL EXUDATES [None]
  - RETINAL HAEMORRHAGE [None]
  - SCAR [None]
  - TREMOR [None]
  - VITREOUS HAEMORRHAGE [None]
